FAERS Safety Report 5227375-8 (Version None)
Quarter: 2007Q1

REPORT INFORMATION
  Report Type: 
  Country: None (occurrence: None)
  Receive Date: 20070130
  Receipt Date: 20070118
  Transmission Date: 20070707
  Serious: Yes (Life-Threatening, Hospitalization)
  Sender: FDA-Public Use
  Company Number: GXKR2007US00941

PATIENT
  Age: 75 Year
  Sex: Male

DRUGS (13)
  1. ACETYLSALICYLIC ACID (NGX) (ACETYLSALICYLIC AC [Suspect]
     Indication: DRUG USE FOR UNKNOWN INDICATION
     Dosage: 81 MG, QD, ORAL
     Route: 048
  2. WARFARIN SODIUM [Suspect]
     Indication: DRUG USE FOR UNKNOWN INDICATION
     Dosage: 7.5 MG, ORAL; SEE IMAGE
     Route: 048
  3. OMEGA-3 FATTY ACIDS (OMEGA-3 FATTY ACIDS) [Suspect]
     Indication: DRUG USE FOR UNKNOWN INDICATION
     Dosage: 6 G, QD, ORAL
     Route: 048
  4. METFORMIN HCL [Concomitant]
  5. GLIPIZIDE [Concomitant]
  6. SIMVASTATIN [Concomitant]
  7. RAMIPRIL [Concomitant]
  8. LEVOTHYROXINE SODIUM [Concomitant]
  9. MIGLITOL (MIGLITOL) [Concomitant]
  10. FUROSEMIDE [Concomitant]
  11. POTASSIUM CHLORIDE [Concomitant]
  12. LORAZEPAM [Concomitant]
  13. IPRATROPIUM BROMIDE [Concomitant]

REACTIONS (8)
  - BRAIN COMPRESSION [None]
  - COAGULOPATHY [None]
  - COORDINATION ABNORMAL [None]
  - DRUG INTERACTION [None]
  - DYSARTHRIA [None]
  - HEMIPARESIS [None]
  - PARTIAL SEIZURES [None]
  - SUBDURAL HAEMATOMA [None]
